FAERS Safety Report 18735738 (Version 1)
Quarter: 2021Q1

REPORT INFORMATION
  Report Type: Spontaneous
  Country: US (occurrence: US)
  Receive Date: 20210113
  Receipt Date: 20210113
  Transmission Date: 20210419
  Serious: Yes (Other)
  Sender: FDA-Public Use
  Company Number: None

PATIENT
  Age: 64 Year
  Sex: Female

DRUGS (8)
  1. NUPLAZID [Suspect]
     Active Substance: PIMAVANSERIN TARTRATE
     Indication: PARKINSON^S DISEASE
     Route: 048
     Dates: start: 20201231, end: 20210112
  2. AMANTADINE 50 MG/5 ML [Concomitant]
  3. RYTARY 36.25?145 MG [Concomitant]
  4. EZETIMIBE 10 MG [Concomitant]
     Active Substance: EZETIMIBE
  5. VALACYCLOVIR 500 MG [Concomitant]
     Active Substance: VALACYCLOVIR HYDROCHLORIDE
  6. NUPLAZID [Suspect]
     Active Substance: PIMAVANSERIN TARTRATE
     Indication: PSYCHOTIC DISORDER
     Route: 048
     Dates: start: 20201231, end: 20210112
  7. CARBIDOPA LEVODOPA 25?100 MG [Concomitant]
  8. ROSUVASTATIN 5 MG [Concomitant]
     Active Substance: ROSUVASTATIN

REACTIONS (1)
  - Paraesthesia [None]

NARRATIVE: CASE EVENT DATE: 20210113
